FAERS Safety Report 15473578 (Version 1)
Quarter: 2018Q4

REPORT INFORMATION
  Report Type: Spontaneous
  Country: CH (occurrence: CH)
  Receive Date: 20181008
  Receipt Date: 20181008
  Transmission Date: 20190205
  Serious: Yes (Hospitalization)
  Sender: FDA-Public Use
  Company Number: CH-MYLANLABS-2018M1071934

PATIENT
  Age: 56 Year
  Sex: Male

DRUGS (4)
  1. TESTOSTERONE. [Suspect]
     Active Substance: TESTOSTERONE
     Indication: MUSCLE MASS
     Route: 030
  2. METHYLTRIENOLONE [Suspect]
     Active Substance: METRIBOLONE
     Indication: PRODUCT USED FOR UNKNOWN INDICATION
     Route: 030
  3. TESTOSTERONE. [Suspect]
     Active Substance: TESTOSTERONE
     Indication: MUSCLE MASS
     Route: 030
  4. DROMOSTANOLONE PROPIONATE [Suspect]
     Active Substance: DROMOSTANOLONE PROPIONATE
     Indication: PRODUCT USED FOR UNKNOWN INDICATION
     Route: 030

REACTIONS (10)
  - Hypertension [Unknown]
  - Jaundice [Unknown]
  - Hyperbilirubinaemia [Recovered/Resolved]
  - Anuria [Recovered/Resolved]
  - Acute kidney injury [Recovering/Resolving]
  - Cholangitis [Unknown]
  - Nephropathy [Recovered/Resolved]
  - Liver injury [Unknown]
  - Drug abuse [Recovered/Resolved]
  - Pruritus [Unknown]
